FAERS Safety Report 10402852 (Version 1)
Quarter: 2014Q3

REPORT INFORMATION
  Report Type: Spontaneous
  Country: US (occurrence: None)
  Receive Date: 20140821
  Receipt Date: 20140821
  Transmission Date: 20150326
  Serious: No
  Sender: FDA-Public Use
  Company Number: None

PATIENT
  Age: 54 Year
  Sex: Male

DRUGS (1)
  1. RIBASPHERE RIBAPAK [Suspect]
     Active Substance: RIBAVIRIN
     Indication: HEPATITIS C
     Dosage: TAKE 600MG/ 400MG  BID ORAL
     Route: 048

REACTIONS (3)
  - Tenderness [None]
  - Contusion [None]
  - Pain in extremity [None]

NARRATIVE: CASE EVENT DATE: 20140805
